FAERS Safety Report 8196398-1 (Version None)
Quarter: 2012Q1

REPORT INFORMATION
  Report Type: 
  Country: None (occurrence: None)
  Receive Date: 20120307
  Receipt Date: 20120307
  Transmission Date: 20120608
  Serious: Yes (Hospitalization)
  Sender: FDA-Public Use
  Company Number: None

PATIENT
  Age: 59 Year
  Sex: Male
  Weight: 108 kg

DRUGS (1)
  1. DAPTOMYCIN [Suspect]
     Dosage: MG SQ
     Route: 058
     Dates: start: 20120111, end: 20120201

REACTIONS (2)
  - ANAPHYLACTIC REACTION [None]
  - RASH [None]
